FAERS Safety Report 21979359 (Version 3)
Quarter: 2023Q4

REPORT INFORMATION
  Report Type: Report from Study
  Country: CA (occurrence: CA)
  Receive Date: 20230210
  Receipt Date: 20231117
  Transmission Date: 20240110
  Serious: Yes (Other)
  Sender: FDA-Public Use
  Company Number: CA-PFIZER INC-202100969747

PATIENT
  Age: 62 Year
  Sex: Female

DRUGS (29)
  1. CORTEF [Suspect]
     Active Substance: HYDROCORTISONE
     Indication: Adrenal insufficiency
     Dosage: 20 MG
     Route: 065
  2. CORTEF [Suspect]
     Active Substance: HYDROCORTISONE
     Dosage: 20 MG
     Route: 065
  3. CORTEF [Suspect]
     Active Substance: HYDROCORTISONE
     Dosage: 20 MG
     Route: 065
  4. CORTEF [Suspect]
     Active Substance: HYDROCORTISONE
     Dosage: 20 MG, 1X/DAY
     Route: 065
  5. CORTEF [Suspect]
     Active Substance: HYDROCORTISONE
     Dosage: 20 MG, 1X/DAY
     Route: 065
  6. CORTEF [Suspect]
     Active Substance: HYDROCORTISONE
     Indication: Adrenal insufficiency
     Dosage: 15 MG, 1X/DAY
     Route: 048
  7. CORTEF [Suspect]
     Active Substance: HYDROCORTISONE
     Dosage: 15 MG, 1X/DAY
     Route: 048
  8. CORTEF [Suspect]
     Active Substance: HYDROCORTISONE
     Dosage: UNK
     Route: 048
  9. CORTEF [Suspect]
     Active Substance: HYDROCORTISONE
     Dosage: UNK
     Route: 048
  10. AZITHROMYCIN [Suspect]
     Active Substance: AZITHROMYCIN
     Dosage: 500 MG
     Route: 065
  11. AZITHROMYCIN [Suspect]
     Active Substance: AZITHROMYCIN
     Dosage: 500 MG, CYCLIC  3 EVERY 1 WEEKS
     Route: 065
  12. FORMOTEROL\MOMETASONE [Suspect]
     Active Substance: FORMOTEROL\MOMETASONE
     Dosage: 4 DF, 2 EVERY 1 DAYS
     Route: 065
  13. IRON [Suspect]
     Active Substance: IRON
     Route: 065
  14. MEPOLIZUMAB [Suspect]
     Active Substance: MEPOLIZUMAB
     Indication: Asthma
     Dosage: 100 MG
     Route: 042
  15. MEPOLIZUMAB [Suspect]
     Active Substance: MEPOLIZUMAB
     Dosage: 100 MG
     Route: 042
  16. MEPOLIZUMAB [Suspect]
     Active Substance: MEPOLIZUMAB
     Dosage: 100 MG
     Route: 042
  17. MEPOLIZUMAB [Suspect]
     Active Substance: MEPOLIZUMAB
     Dosage: 100 MG
     Route: 042
  18. MEPOLIZUMAB [Suspect]
     Active Substance: MEPOLIZUMAB
     Dosage: 100 MG
     Route: 042
  19. MEPOLIZUMAB [Suspect]
     Active Substance: MEPOLIZUMAB
     Dosage: 100 MG
     Route: 042
  20. MEPOLIZUMAB [Suspect]
     Active Substance: MEPOLIZUMAB
     Dosage: 100 MG, MONTHLY
     Route: 042
  21. MEPOLIZUMAB [Suspect]
     Active Substance: MEPOLIZUMAB
     Dosage: 100 MG, MONTHLY
     Route: 042
  22. AZITHROMYCIN ANHYDROUS [Suspect]
     Active Substance: AZITHROMYCIN ANHYDROUS
     Dosage: 500 MG
     Route: 065
  23. PREDNISONE [Suspect]
     Active Substance: PREDNISONE
     Indication: Asthma
     Dosage: UNK
     Route: 065
  24. PREDNISONE [Suspect]
     Active Substance: PREDNISONE
     Dosage: UNK
     Route: 065
  25. PULMICORT TURBUHALER [Suspect]
     Active Substance: BUDESONIDE
     Dosage: 400 MG, 2 EVERY 1 DAYS
     Route: 055
  26. SINGULAIR [Suspect]
     Active Substance: MONTELUKAST SODIUM
     Dosage: 1 DF, 1 EVERY 1 DAYS
     Route: 065
  27. SPIRIVA [Suspect]
     Active Substance: TIOTROPIUM BROMIDE MONOHYDRATE
     Dosage: 2 DF, 1 EVERY 1 DAYS
     Route: 065
  28. VENTOLIN [Suspect]
     Active Substance: ALBUTEROL SULFATE
     Route: 065
  29. ZENHALE [Suspect]
     Active Substance: FORMOTEROL FUMARATE\MOMETASONE FUROATE
     Dosage: 4 DF, 2X/DAY
     Route: 065

REACTIONS (16)
  - Adrenal insufficiency [Recovering/Resolving]
  - Asthma [Recovering/Resolving]
  - Cough [Recovering/Resolving]
  - Dyspnoea [Recovering/Resolving]
  - Hyperventilation [Recovering/Resolving]
  - Infection [Recovering/Resolving]
  - Loss of personal independence in daily activities [Recovering/Resolving]
  - Obesity [Recovering/Resolving]
  - Pain in extremity [Recovering/Resolving]
  - Pneumonia [Recovering/Resolving]
  - Rash macular [Recovering/Resolving]
  - Skin discolouration [Recovering/Resolving]
  - Sleep disorder due to a general medical condition [Recovering/Resolving]
  - Vaginal infection [Recovering/Resolving]
  - Wheezing [Recovering/Resolving]
  - Drug ineffective [Recovering/Resolving]
